FAERS Safety Report 14854583 (Version 1)
Quarter: 2018Q2

REPORT INFORMATION
  Report Type: Spontaneous
  Country: US (occurrence: US)
  Receive Date: 20180507
  Receipt Date: 20180507
  Transmission Date: 20180711
  Serious: Yes (Other)
  Sender: FDA-Public Use
  Company Number: US-ELI_LILLY_AND_COMPANY-US201804013701

PATIENT
  Age: 67 Year
  Sex: Female

DRUGS (2)
  1. LEVEMIR [Concomitant]
     Active Substance: INSULIN DETEMIR
     Indication: TYPE 2 DIABETES MELLITUS
     Dosage: 60 U, UNKNOWN
  2. TRULICITY [Suspect]
     Active Substance: DULAGLUTIDE
     Indication: PRODUCT USED FOR UNKNOWN INDICATION
     Dosage: 1.5 MG, UNKNOWN
     Route: 065
     Dates: start: 20180415

REACTIONS (12)
  - Dehydration [Recovering/Resolving]
  - Vomiting [Recovering/Resolving]
  - Hypotension [Recovered/Resolved]
  - Abdominal discomfort [Recovering/Resolving]
  - Eructation [Recovering/Resolving]
  - Diarrhoea [Recovering/Resolving]
  - Tremor [Recovered/Resolved]
  - Asthenia [Recovering/Resolving]
  - Drug prescribing error [Unknown]
  - Headache [Recovered/Resolved]
  - Blood glucose decreased [Recovered/Resolved]
  - Dysstasia [Recovered/Resolved]

NARRATIVE: CASE EVENT DATE: 20180418
